FAERS Safety Report 5918551-7 (Version None)
Quarter: 2008Q4

REPORT INFORMATION
  Report Type: 
  Country: None (occurrence: None)
  Receive Date: 20081014
  Receipt Date: 20081014
  Transmission Date: 20090506
  Serious: Yes (Life-Threatening, Hospitalization)
  Sender: FDA-Public Use
  Company Number: None

PATIENT
  Age: 70 Year
  Sex: Male

DRUGS (8)
  1. ENOXAPARIN SODIUM [Suspect]
     Indication: PULMONARY EMBOLISM
     Dosage: 120MG BID SQ
     Route: 058
     Dates: start: 20080921, end: 20080922
  2. WARFARIN SODIUM [Suspect]
     Indication: PULMONARY EMBOLISM
     Dosage: 7.5 DAILY PO
     Route: 048
     Dates: start: 20080921, end: 20080921
  3. METOPROLOL TARTRATE [Concomitant]
  4. LIPITOR [Concomitant]
  5. GLYBURIDE [Concomitant]
  6. BENICAR [Concomitant]
  7. FUROSEMIDE [Concomitant]
  8. ASPIRIN [Concomitant]

REACTIONS (9)
  - EXTRADURAL HAEMATOMA [None]
  - HAEMORRHAGE [None]
  - HYPOAESTHESIA [None]
  - HYPOTENSION [None]
  - IMMOBILE [None]
  - LUMBAR SPINAL STENOSIS [None]
  - MUSCULAR WEAKNESS [None]
  - SENSORY LOSS [None]
  - SUBARACHNOID HAEMORRHAGE [None]
